FAERS Safety Report 16254722 (Version 3)
Quarter: 2019Q3

REPORT INFORMATION
  Report Type: Spontaneous
  Country: FR (occurrence: FR)
  Receive Date: 20190430
  Receipt Date: 20190903
  Transmission Date: 20191004
  Serious: Yes (Death, Other)
  Sender: FDA-Public Use
  Company Number: FR-AUROBINDO-AUR-APL-2019-023127

PATIENT

DRUGS (19)
  1. ATROVENT [Suspect]
     Active Substance: IPRATROPIUM BROMIDE
     Indication: CEREBRAL PALSY
     Dosage: UNK
     Route: 065
  2. BOTOX [Suspect]
     Active Substance: ONABOTULINUMTOXINA
     Indication: CEREBRAL PALSY
     Dosage: UNK, SINGLE
     Route: 030
  3. IBUPROFEN. [Suspect]
     Active Substance: IBUPROFEN
     Indication: CEREBRAL PALSY
     Dosage: UNK
     Route: 065
  4. GENTAMICIN B BRAUN [Suspect]
     Active Substance: GENTAMICIN
     Indication: CEREBRAL PALSY
     Dosage: UNK
     Route: 065
  5. LEVOSALBUTAMOL [Suspect]
     Active Substance: LEVALBUTEROL
     Indication: CEREBRAL PALSY
     Dosage: UNK
     Route: 065
  6. BUDESONIDE. [Suspect]
     Active Substance: BUDESONIDE
     Indication: CEREBRAL PALSY
     Dosage: UNK
     Route: 065
  7. LACTULOSE. [Suspect]
     Active Substance: LACTULOSE
     Indication: CEREBRAL PALSY
     Dosage: UNK
     Route: 065
  8. LEVETIRACETAM. [Suspect]
     Active Substance: LEVETIRACETAM
     Indication: CEREBRAL PALSY
     Dosage: UNK
     Route: 065
  9. RANITIDINE. [Suspect]
     Active Substance: RANITIDINE
     Indication: CEREBRAL PALSY
     Dosage: UNK
     Route: 065
  10. VALPROIC ACID. [Suspect]
     Active Substance: VALPROIC ACID
     Indication: CEREBRAL PALSY
     Dosage: UNK
     Route: 065
  11. GABAPENTIN. [Suspect]
     Active Substance: GABAPENTIN
     Indication: CEREBRAL PALSY
     Dosage: UNK
     Route: 065
  12. DIAZEPAM. [Suspect]
     Active Substance: DIAZEPAM
     Indication: PRODUCT USED FOR UNKNOWN INDICATION
     Dosage: UNK
     Route: 065
  13. METOCLOPRAMIDE HYDROCHLORIDE. [Suspect]
     Active Substance: METOCLOPRAMIDE HYDROCHLORIDE
     Indication: CEREBRAL PALSY
     Dosage: UNK
     Route: 065
  14. TRANXENE [Suspect]
     Active Substance: CLORAZEPATE DIPOTASSIUM
     Indication: CEREBRAL PALSY
     Dosage: UNK
     Route: 065
  15. CATAPRESSAN [Suspect]
     Active Substance: CLONIDINE
     Indication: CEREBRAL PALSY
     Dosage: 0.15 MILLIGRAM, ONCE A DAY
     Route: 048
  16. CETIRIZINE [Suspect]
     Active Substance: CETIRIZINE HYDROCHLORIDE
     Indication: CEREBRAL PALSY
     Dosage: UNK
     Route: 065
  17. BOTOX [Suspect]
     Active Substance: ONABOTULINUMTOXINA
     Dosage: FORM: POWDER AND SOLVENT FOR PROLONGED RELEASE SUSPENSION FOR INJECT
     Route: 030
  18. DIPOTASSIUM CLORAZEPATE [Suspect]
     Active Substance: CLORAZEPATE DIPOTASSIUM
     Indication: CEREBRAL PALSY
     Dosage: UNK
     Route: 065
  19. BACLOFEN. [Suspect]
     Active Substance: BACLOFEN
     Indication: CEREBRAL PALSY
     Dosage: UNK
     Route: 065

REACTIONS (5)
  - Seizure [Fatal]
  - Pneumonia [Fatal]
  - Off label use [Unknown]
  - Muscular weakness [Fatal]
  - Death [Fatal]
